FAERS Safety Report 15607756 (Version 9)
Quarter: 2025Q1

REPORT INFORMATION
  Report Type: Spontaneous
  Country: US (occurrence: US)
  Receive Date: 20181112
  Receipt Date: 20250130
  Transmission Date: 20250408
  Serious: Yes (Other)
  Sender: INCYTE
  Company Number: US-INCYTE CORPORATION-2018IN002360

PATIENT

DRUGS (22)
  1. JAKAFI [Suspect]
     Active Substance: RUXOLITINIB
     Indication: Polycythaemia vera
     Dosage: 15 MG, BID
     Route: 048
     Dates: start: 20160824
  2. JAKAFI [Suspect]
     Active Substance: RUXOLITINIB
     Dosage: 15 MG, BID
     Route: 048
  3. JAKAFI [Suspect]
     Active Substance: RUXOLITINIB
     Dosage: 15 MG, BID
     Route: 048
  4. JAKAFI [Suspect]
     Active Substance: RUXOLITINIB
     Dosage: 15 MG, BID
     Route: 048
  5. JAKAFI [Suspect]
     Active Substance: RUXOLITINIB
     Dosage: 10 MILLIGRAM, BID
     Route: 048
     Dates: start: 20160824
  6. JAKAFI [Suspect]
     Active Substance: RUXOLITINIB
     Dosage: 15 MG, BID
     Route: 048
  7. JAKAFI [Suspect]
     Active Substance: RUXOLITINIB
     Dosage: 15 MG, BID
     Route: 048
  8. JAKAFI [Suspect]
     Active Substance: RUXOLITINIB
     Dosage: 15 MG, BID
     Route: 048
  9. JAKAFI [Suspect]
     Active Substance: RUXOLITINIB
     Dosage: 15 MILLIGRAM, BID
     Route: 048
     Dates: start: 20230615
  10. PFIZER-BIONTECH COVID-19 VACCINE [Suspect]
     Active Substance: TOZINAMERAN
     Indication: Product used for unknown indication
     Route: 065
  11. ASPIRIN [Concomitant]
     Active Substance: ASPIRIN
     Indication: Product used for unknown indication
     Dosage: 81 MILLIGRAM, QD
     Route: 065
  12. CALCIUM CITRATE;VITAMIN D NOS [Concomitant]
     Indication: Product used for unknown indication
     Route: 065
  13. GLUCOSAMINE CHONDROITIN            /08437701/ [Concomitant]
     Indication: Product used for unknown indication
     Route: 065
  14. BENADRYL [Concomitant]
     Active Substance: DIPHENHYDRAMINE HYDROCHLORIDE
     Indication: Pruritus
     Route: 065
  15. ALENDRONATE [Concomitant]
     Active Substance: ALENDRONATE SODIUM
     Indication: Product used for unknown indication
     Dosage: 35 MILLIGRAM, WEEKLY
     Route: 065
  16. ALENDRONATE [Concomitant]
     Active Substance: ALENDRONATE SODIUM
     Route: 065
  17. TUMS [Concomitant]
     Active Substance: CALCIUM CARBONATE
     Indication: Product used for unknown indication
     Route: 065
  18. CORTISONE [Concomitant]
     Active Substance: CORTISONE
     Indication: Product used for unknown indication
     Route: 065
  19. FLONASE ALLERGY RELIEF [Concomitant]
     Active Substance: FLUTICASONE PROPIONATE
     Indication: Product used for unknown indication
     Route: 065
  20. HYDROCORTISONE [Concomitant]
     Active Substance: HYDROCORTISONE
     Indication: Product used for unknown indication
     Route: 065
  21. HYDROCORTISONE [Concomitant]
     Active Substance: HYDROCORTISONE
     Route: 065
  22. TYLENOL [Concomitant]
     Active Substance: ACETAMINOPHEN
     Indication: Product used for unknown indication
     Route: 065

REACTIONS (34)
  - Chest injury [Unknown]
  - Hypokalaemia [Unknown]
  - Spinal disorder [Not Recovered/Not Resolved]
  - Osteoporosis [Not Recovered/Not Resolved]
  - Decreased activity [Not Recovered/Not Resolved]
  - Glycosylated haemoglobin increased [Not Recovered/Not Resolved]
  - Stress fracture [Unknown]
  - Platelet count increased [Unknown]
  - Sinus congestion [Recovering/Resolving]
  - Exercise tolerance decreased [Unknown]
  - Walking aid user [Unknown]
  - Paraesthesia [Not Recovered/Not Resolved]
  - Memory impairment [Not Recovered/Not Resolved]
  - Thinking abnormal [Not Recovered/Not Resolved]
  - Red blood cell count decreased [Not Recovered/Not Resolved]
  - Platelet count abnormal [Not Recovered/Not Resolved]
  - Blood potassium increased [Unknown]
  - Hypoaesthesia [Not Recovered/Not Resolved]
  - Osteopenia [Not Recovered/Not Resolved]
  - Injection site pain [Unknown]
  - Peripheral arterial occlusive disease [Not Recovered/Not Resolved]
  - Eye pain [Unknown]
  - Somnolence [Unknown]
  - Hyponatraemia [Unknown]
  - Hypouricaemia [Unknown]
  - Product dose omission in error [Unknown]
  - Product dose omission issue [Unknown]
  - Weight increased [Not Recovered/Not Resolved]
  - Blood cholesterol increased [Not Recovered/Not Resolved]
  - Fatigue [Not Recovered/Not Resolved]
  - Cough [Not Recovered/Not Resolved]
  - Pruritus [Unknown]
  - Haematocrit decreased [Unknown]
  - Headache [Unknown]

NARRATIVE: CASE EVENT DATE: 20170314
